FAERS Safety Report 17610535 (Version 8)
Quarter: 2020Q3

REPORT INFORMATION
  Report Type: Spontaneous
  Country: CZ (occurrence: CZ)
  Receive Date: 20200401
  Receipt Date: 20200804
  Transmission Date: 20201102
  Serious: Yes (Death, Hospitalization)
  Sender: FDA-Public Use
  Company Number: CZ-CELGENEUS-CZE-20200309474

PATIENT
  Age: 79 Year
  Sex: Female

DRUGS (56)
  1. ALLOPURINOL. [Concomitant]
     Active Substance: ALLOPURINOL
     Dosage: 300 MILLIGRAM
     Route: 048
     Dates: start: 20180412, end: 20180423
  2. COLECALCIFEROLUM [Concomitant]
     Dosage: 600 MILLIGRAM
     Route: 048
     Dates: start: 2017, end: 20180217
  3. COLECALCIFEROLUM [Concomitant]
     Dosage: 10 DROPS
     Route: 048
     Dates: start: 20191224, end: 20200106
  4. RAMIPRILUMI [Concomitant]
     Dosage: 5 MILLIGRAM
     Route: 048
     Dates: start: 20181115
  5. AMLODIPINUM [Concomitant]
     Dosage: 5 MILLIGRAM
     Route: 048
     Dates: start: 20180218, end: 20180218
  6. AMLODIPINUM [Concomitant]
     Dosage: 5 MILLIGRAM
     Route: 048
     Dates: start: 20181115
  7. CEFUROXIMUM AXETILI [Concomitant]
     Route: 048
     Dates: start: 20200319, end: 20200327
  8. ATOVARSTATINUM [Concomitant]
     Indication: PROPHYLAXIS
     Dosage: 20 MILLIGRAM
     Route: 048
     Dates: start: 2013, end: 20180217
  9. COLECALCIFEROLUM [Concomitant]
     Indication: HYPOVITAMINOSIS
     Dosage: 1 DROPS
     Route: 048
     Dates: start: 201712
  10. METOCLOPRAMIDI HYDROCHLORIDUM MONOHYDRICUM [Concomitant]
     Indication: PROPHYLAXIS OF NAUSEA AND VOMITING
     Dosage: 10 MILLIGRAM
     Route: 041
     Dates: start: 20180315, end: 20180317
  11. AMLODIPINUM [Concomitant]
     Dosage: 5 MILLIGRAM
     Route: 048
     Dates: start: 20180220, end: 20181111
  12. ARDEAELYTOSOL EL [Concomitant]
     Indication: PROPHYLAXIS
     Dosage: 1500 MILLILITER
     Route: 041
     Dates: start: 20180216, end: 20180219
  13. ARDEAELYTOSOL EL [Concomitant]
     Dosage: 500 MILLILITER
     Route: 041
     Dates: start: 20180412, end: 20180415
  14. AMOXICILLINUM, A?CIDUM CLAVULANICUM [Concomitant]
     Route: 048
     Dates: start: 20200324, end: 20200327
  15. AZACITIDINE. [Suspect]
     Active Substance: AZACITIDINE
     Indication: ACUTE MYELOID LEUKAEMIA
     Dosage: 75 MILLIGRAM/SQ. METER
     Route: 058
     Dates: start: 20180215, end: 20191117
  16. COLECALCIFEROLUM [Concomitant]
     Dosage: 600 MILLIGRAM
     Route: 048
     Dates: start: 20180220
  17. METOCLOPRAMIDI HYDROCHLORIDUM MONOHYDRICUM [Concomitant]
     Dosage: 10 MILLIGRAM
     Route: 048
     Dates: start: 20190722, end: 20191223
  18. ALPRAZOLAMUM [Concomitant]
     Dosage: .5 MILLIGRAM
     Route: 048
     Dates: start: 20180216, end: 20180217
  19. ALPRAZOLAMUM [Concomitant]
     Dosage: .5 MILLIGRAM
     Route: 048
     Dates: start: 20180219, end: 20180224
  20. ALPRAZOLAMUM [Concomitant]
     Dosage: .5 MILLIGRAM
     Route: 048
     Dates: start: 20180424, end: 20180604
  21. TRAMADOLI HYDROCHLORIDUM/ PARACETAMOLUM [Concomitant]
     Indication: PAIN IN EXTREMITY
     Route: 048
     Dates: start: 20200329
  22. METFORMI HYDROCHLORIDUM [Concomitant]
     Dosage: 500 MILLIGRAM
     Route: 048
     Dates: start: 20180221
  23. METOCLOPRAMIDI HYDROCHLORIDUM MONOHYDRICUM [Concomitant]
     Dosage: 10 MILLIGRAM
     Route: 048
     Dates: start: 20200106
  24. SULFAMETHOXAZOLE/TRIMETHOPRIM [Concomitant]
     Active Substance: SULFAMETHOXAZOLE\TRIMETHOPRIM
     Indication: INFECTION PROPHYLAXIS
     Dosage: 480 MILLIGRAM
     Route: 048
     Dates: start: 20180131, end: 20200324
  25. CEFUROXIMUM AXETILI [Concomitant]
     Dosage: 500 MILLIGRAM
     Route: 048
     Dates: start: 20191217, end: 20191223
  26. AZACITIDINE. [Suspect]
     Active Substance: AZACITIDINE
     Dosage: 75 MILLIGRAM/SQ. METER
     Route: 058
     Dates: start: 20200106, end: 20200308
  27. SULFAMETHOXAZOLE/TRIMETHOPRIM [Concomitant]
     Active Substance: SULFAMETHOXAZOLE\TRIMETHOPRIM
     Dosage: 1920 MILLIGRAM
     Route: 048
     Dates: start: 20200203, end: 20200224
  28. SULFAMETHOXAZOLE/TRIMETHOPRIM [Concomitant]
     Active Substance: SULFAMETHOXAZOLE\TRIMETHOPRIM
     Dosage: 480 MILLIGRAM
     Route: 048
     Dates: start: 20200225
  29. AMLODIPINUM [Concomitant]
     Indication: HYPERTENSION
     Dosage: 10 MILLIGRAM
     Route: 048
     Dates: start: 2013, end: 20180217
  30. AMOXICILLINUM, A?CIDUM CLAVULANICUM [Concomitant]
     Indication: INFECTION
     Dosage: 1 GRAM
     Route: 048
     Dates: start: 20180217, end: 20180218
  31. AMOXICILLINUM, A?CIDUM CLAVULANICUM [Concomitant]
     Indication: INFECTION PROPHYLAXIS
     Dosage: 2.4 GRAM
     Route: 041
     Dates: start: 20180218, end: 20180218
  32. AMOXICILLINUM, A?CIDUM CLAVULANICUM [Concomitant]
     Dosage: 2 GRAM
     Route: 048
     Dates: start: 20191209, end: 20191216
  33. ALPRAZOLAMUM [Concomitant]
     Dosage: .5 MILLIGRAM
     Route: 048
     Dates: start: 20180623
  34. ALLOPURINOL. [Concomitant]
     Active Substance: ALLOPURINOL
     Indication: PROPHYLAXIS
     Dosage: 300 MILLIGRAM
     Route: 048
     Dates: start: 20180214, end: 20180214
  35. ALLOPURINOL. [Concomitant]
     Active Substance: ALLOPURINOL
     Dosage: 100 MILLIGRAM
     Route: 048
     Dates: start: 20180510
  36. ATOVARSTATINUM [Concomitant]
     Dosage: 20 MILLIGRAM
     Route: 048
     Dates: start: 20180220
  37. RAMIPRILUMI [Concomitant]
     Indication: HYPERTENSION
     Dosage: 10 MILLIGRAM
     Route: 048
     Dates: start: 2013, end: 20180217
  38. RAMIPRILUMI [Concomitant]
     Dosage: 5 MILLIGRAM
     Route: 048
     Dates: start: 20180220, end: 20181111
  39. PLACEBO [Concomitant]
     Active Substance: UNSPECIFIED INGREDIENT
     Route: 048
     Dates: start: 20180216, end: 20180216
  40. AMOXICILLINUM, A?CIDUM CLAVULANICUM [Concomitant]
     Indication: URINARY TRACT INFECTION
     Dosage: 2 GRAM
     Route: 048
     Dates: start: 20180226, end: 20180227
  41. AMOXICILLINUM, A?CIDUM CLAVULANICUM [Concomitant]
     Dosage: 2 GRAM
     Route: 048
     Dates: start: 20180602, end: 20180611
  42. ALPRAZOLAMUM [Concomitant]
     Indication: INSOMNIA
     Dosage: .5 MILLIGRAM
     Route: 048
     Dates: start: 20180214, end: 20180214
  43. OMEPRAZOLUM [Concomitant]
     Indication: PROPHYLAXIS OF NAUSEA AND VOMITING
     Dosage: 20 MILLIGRAM
     Route: 048
     Dates: start: 201710
  44. METFORMI HYDROCHLORIDUM [Concomitant]
     Indication: DIABETES MELLITUS
     Dosage: 500 MILLIGRAM
     Route: 048
     Dates: start: 2012, end: 20180218
  45. RAMIPRILUMI [Concomitant]
     Dosage: 5 MILLIGRAM
     Route: 048
     Dates: start: 20180218, end: 20180218
  46. METOCLOPRAMIDI HYDROCHLORIDUM MONOHYDRICUM [Concomitant]
     Indication: PROPHYLAXIS OF NAUSEA AND VOMITING
     Dosage: 10 MILLIGRAM
     Route: 048
     Dates: start: 20180218, end: 20180218
  47. METOCLOPRAMIDI HYDROCHLORIDUM MONOHYDRICUM [Concomitant]
     Indication: VOMITING
     Dosage: 30 MILLIGRAM
     Route: 048
     Dates: start: 20180219, end: 20180225
  48. PLACEBO [Concomitant]
     Active Substance: UNSPECIFIED INGREDIENT
     Route: 048
     Dates: start: 20180217, end: 20180411
  49. PLACEBO [Concomitant]
     Active Substance: UNSPECIFIED INGREDIENT
     Route: 048
     Dates: start: 20180412, end: 20200319
  50. CEFUROXIMUM AXETILI [Concomitant]
     Indication: INFECTION
     Dosage: 1000 MILLIGRAM
     Route: 048
     Dates: start: 20180525, end: 20180602
  51. AMOXICILLINUM, A?CIDUM CLAVULANICUM [Concomitant]
     Indication: BRONCHITIS
     Dosage: 3.6 GRAM
     Route: 041
     Dates: start: 20180219, end: 20180225
  52. NORMAL SALINE SOLUTION [Concomitant]
     Active Substance: SODIUM CHLORIDE
     Indication: PROPHYLAXIS
     Dosage: 3500 MILLILITER
     Route: 041
     Dates: start: 20180214, end: 20180218
  53. COLECALCIFEROLUM [Concomitant]
     Dosage: 10 DROPS
     Route: 048
     Dates: start: 20200107
  54. METOCLOPRAMIDI HYDROCHLORIDUM MONOHYDRICUM [Concomitant]
     Dosage: 10 MILLIGRAM
     Route: 041
     Dates: start: 20180318, end: 20180321
  55. SULFAMETHOXAZOLE/TRIMETHOPRIM [Concomitant]
     Active Substance: SULFAMETHOXAZOLE\TRIMETHOPRIM
     Indication: PROPHYLAXIS OF NAUSEA AND VOMITING
     Dosage: 480 MILLIGRAM
     Route: 048
     Dates: start: 20180603, end: 20200202
  56. PLACEBO [Concomitant]
     Active Substance: UNSPECIFIED INGREDIENT
     Indication: ACUTE MYELOID LEUKAEMIA
     Route: 048
     Dates: start: 20180215, end: 20180215

REACTIONS (1)
  - General physical health deterioration [Fatal]

NARRATIVE: CASE EVENT DATE: 20200327
